FAERS Safety Report 16028706 (Version 1)
Quarter: 2019Q1

REPORT INFORMATION
  Report Type: Spontaneous
  Country: US (occurrence: US)
  Receive Date: 20190204
  Receipt Date: 20190204
  Transmission Date: 20190418
  Serious: Yes (Hospitalization)
  Sender: FDA-Public Use
  Company Number: None

PATIENT
  Age: 63 Year
  Sex: Female
  Weight: 53.7 kg

DRUGS (7)
  1. ANASTROZOLE. [Concomitant]
     Active Substance: ANASTROZOLE
  2. ONDANSETRON [Concomitant]
     Active Substance: ONDANSETRON
  3. APIXABAN [Suspect]
     Active Substance: APIXABAN
     Indication: EMBOLISM
     Dosage: BLINDED
     Route: 048
     Dates: start: 20190111
  4. LOPERAMIDE [Concomitant]
     Active Substance: LOPERAMIDE
  5. EMLA [Concomitant]
     Active Substance: LIDOCAINE\PRILOCAINE
  6. PROCHLORPERAZINE. [Concomitant]
     Active Substance: PROCHLORPERAZINE
  7. ATORVASTATIN [Concomitant]
     Active Substance: ATORVASTATIN

REACTIONS (4)
  - Pyrexia [None]
  - Therapy cessation [None]
  - Haematuria [None]
  - Urinary tract infection [None]

NARRATIVE: CASE EVENT DATE: 20190117
